FAERS Safety Report 24254615 (Version 2)
Quarter: 2024Q3

REPORT INFORMATION
  Report Type: Spontaneous
  Country: NL (occurrence: NL)
  Receive Date: 20240827
  Receipt Date: 20240903
  Transmission Date: 20241017
  Serious: Yes (Hospitalization, Other)
  Sender: SANDOZ
  Company Number: NL-NAPPMUNDI-GBR-2024-0118905

PATIENT
  Age: 75 Year
  Sex: Female
  Weight: 98 kg

DRUGS (25)
  1. CYCLOPHOSPHAMIDE [Suspect]
     Active Substance: CYCLOPHOSPHAMIDE
     Indication: Diffuse large B-cell lymphoma stage IV
     Dosage: C1D1 - C6D1, 750 MG/M2
     Route: 042
     Dates: start: 20210826
  2. DECADRON (DEXAMETHASONE SODIUM PHOSPHATE) [Suspect]
     Active Substance: DEXAMETHASONE SODIUM PHOSPHATE
     Dosage: 4 MILLIGRAM SINGLE
     Route: 037
     Dates: start: 20211118
  3. DECADRON (DEXAMETHASONE SODIUM PHOSPHATE) [Suspect]
     Active Substance: DEXAMETHASONE SODIUM PHOSPHATE
     Indication: Diffuse large B-cell lymphoma stage IV
     Dosage: 4 MILLIGRAM, QD(DAILY)
     Route: 037
     Dates: start: 20211014, end: 20211014
  4. DECADRON (DEXAMETHASONE SODIUM PHOSPHATE) [Suspect]
     Active Substance: DEXAMETHASONE SODIUM PHOSPHATE
     Dosage: 4 MILLIGRAM, QD(DAILY)
     Route: 037
     Dates: start: 20210915, end: 20210915
  5. DOXORUBICIN HYDROCHLORIDE [Suspect]
     Active Substance: DOXORUBICIN HYDROCHLORIDE
     Indication: Diffuse large B-cell lymphoma stage IV
     Dosage: C1D1 - C6D1, 50 MG/M2
     Route: 042
     Dates: start: 20210826
  6. PEGFILGRASTIM [Suspect]
     Active Substance: PEGFILGRASTIM
     Indication: Product used for unknown indication
     Dosage: UNK
     Route: 065
     Dates: start: 20210915
  7. PREDNISONE [Suspect]
     Active Substance: PREDNISONE
     Dosage: 100 MILLIGRAM, QD(DAILY)
     Route: 042
     Dates: start: 20210826, end: 20210826
  8. PREDNISONE [Suspect]
     Active Substance: PREDNISONE
     Dosage: 100 MILLIGRAM, QD(DAILY)
     Route: 048
     Dates: start: 20210827, end: 20210830
  9. PREDNISONE [Suspect]
     Active Substance: PREDNISONE
     Dosage: 100 MILLIGRAM, QD(DAILY)
     Route: 048
     Dates: start: 20210902, end: 20210904
  10. PREDNISONE [Suspect]
     Active Substance: PREDNISONE
     Dosage: 100 MILLIGRAM, QD(DAILY)
     Route: 048
     Dates: start: 20210909, end: 20210911
  11. PREDNISONE [Suspect]
     Active Substance: PREDNISONE
     Dosage: 100 MILLIGRAM, QD(DAILY)
     Route: 048
     Dates: start: 20210915, end: 20210919
  12. PREDNISONE [Suspect]
     Active Substance: PREDNISONE
     Dosage: 100 MILLIGRAM, QD(DAILY)
     Route: 048
     Dates: start: 20211014, end: 20211017
  13. PREDNISONE [Suspect]
     Active Substance: PREDNISONE
     Dosage: 100 MILLIGRAM, QD(DAILY)
     Route: 048
     Dates: start: 20211103
  14. PREDNISONE [Suspect]
     Active Substance: PREDNISONE
     Indication: Diffuse large B-cell lymphoma stage IV
     Dosage: 100 MILLIGRAM SINGLE
     Route: 042
     Dates: start: 20210908, end: 20210908
  15. PREDNISONE [Suspect]
     Active Substance: PREDNISONE
     Dosage: 100 MILLIGRAM SINGLE
     Route: 042
     Dates: start: 20210901, end: 20210901
  16. VINCRISTINE [Suspect]
     Active Substance: VINCRISTINE
     Indication: Diffuse large B-cell lymphoma stage IV
     Dosage: C1D1 - C6D1,1.4 MG/M2
     Route: 042
     Dates: start: 20210826
  17. DABIGATRAN [Concomitant]
     Active Substance: DABIGATRAN
     Indication: Product used for unknown indication
     Dosage: UNK
     Route: 065
     Dates: start: 20210714
  18. EPCORITAMAB [Concomitant]
     Active Substance: EPCORITAMAB
     Dosage: C1D1
     Route: 058
     Dates: start: 20210826, end: 20210826
  19. EPCORITAMAB [Concomitant]
     Active Substance: EPCORITAMAB
     Dosage: C1D15-C4D15
     Route: 058
     Dates: start: 20210908, end: 20211118
  20. EPCORITAMAB [Concomitant]
     Active Substance: EPCORITAMAB
     Indication: Diffuse large B-cell lymphoma stage IV
     Dosage: C1D8
     Route: 058
     Dates: start: 20210901, end: 20210901
  21. EPCORITAMAB [Concomitant]
     Active Substance: EPCORITAMAB
     Dosage: C5D1-C6D1
     Route: 058
     Dates: start: 20211125, end: 20211216
  22. EPCORITAMAB [Concomitant]
     Active Substance: EPCORITAMAB
     Dosage: C7D1 ONWARDS
     Route: 058
     Dates: start: 20220107
  23. METOPROLOL [Concomitant]
     Active Substance: METOPROLOL
     Indication: Product used for unknown indication
     Dosage: UNK
     Route: 065
     Dates: start: 20210714
  24. RITUXIMAB [Concomitant]
     Active Substance: RITUXIMAB
     Dosage: C1D1
     Route: 042
     Dates: start: 20210826, end: 20210826
  25. RITUXIMAB [Concomitant]
     Active Substance: RITUXIMAB
     Indication: Diffuse large B-cell lymphoma stage IV
     Dosage: C2D1-C6D1
     Route: 042
     Dates: start: 20210915, end: 20211216

REACTIONS (6)
  - Escherichia bacteraemia [Recovered/Resolved]
  - Pneumonia klebsiella [Recovered/Resolved]
  - Clostridium difficile colitis [Recovered/Resolved]
  - Pyrexia [Recovered/Resolved]
  - Proteus test positive [Unknown]
  - Urinary tract infection [Recovered/Resolved]

NARRATIVE: CASE EVENT DATE: 20210922
